FAERS Safety Report 20827750 (Version 1)
Quarter: 2022Q2

REPORT INFORMATION
  Report Type: Report from Study
  Country: US (occurrence: US)
  Receive Date: 20220513
  Receipt Date: 20220513
  Transmission Date: 20220720
  Serious: Yes (Other)
  Sender: FDA-Public Use
  Company Number: US-MYLANLABS-2022M1033694

PATIENT
  Sex: Male

DRUGS (1)
  1. FULPHILA [Suspect]
     Active Substance: PEGFILGRASTIM-JMDB
     Indication: Hodgkin^s disease
     Dosage: 6 MILLIGRAM, QD
     Route: 058

REACTIONS (2)
  - Hodgkin^s disease refractory [Unknown]
  - Off label use [Unknown]
